FAERS Safety Report 6608938-1 (Version None)
Quarter: 2010Q1

REPORT INFORMATION
  Report Type: 
  Country: None (occurrence: None)
  Receive Date: 20100301
  Receipt Date: 20100225
  Transmission Date: 20100710
  Serious: Yes (Other)
  Sender: FDA-Public Use
  Company Number: US-ROXANE LABORATORIES, INC.-2010-RO-00203RO

PATIENT
  Age: 28 Year
  Sex: Female
  Weight: 122 kg

DRUGS (21)
  1. MORPHINE [Suspect]
     Indication: SPINAL ANAESTHESIA
     Dosage: 150 MCG
     Route: 037
  2. ONDANSETRON [Suspect]
     Indication: NAUSEA
     Route: 042
  3. ONDANSETRON [Suspect]
     Indication: VOMITING
  4. DEXAMETHASONE [Suspect]
     Indication: NAUSEA
  5. MEPERIDINE HCL [Suspect]
     Indication: CHILLS
     Dosage: 25 MG
     Route: 042
  6. MIDAZOLAM HCL [Suspect]
     Indication: VOMITING
     Dosage: 1 MG
     Route: 042
  7. MIDAZOLAM HCL [Suspect]
     Indication: RESTLESSNESS
  8. BUPIVACAINE HCL [Suspect]
     Indication: SPINAL ANAESTHESIA
     Dosage: 12 MG
     Route: 037
  9. FENTANYL-100 [Suspect]
     Indication: SPINAL ANAESTHESIA
     Dosage: 15 MCG
     Route: 037
  10. PHENYLEPHRINE [Suspect]
     Indication: PROPHYLAXIS
  11. DIPHENHYDRAMINE [Suspect]
     Indication: NAUSEA
     Dosage: 6.25 MG
     Route: 042
  12. DIPHENHYDRAMINE [Suspect]
     Indication: VOMITING
  13. DROPERIDOL [Suspect]
     Indication: NAUSEA
     Dosage: 0.625 MG
     Route: 042
  14. DROPERIDOL [Suspect]
     Indication: VOMITING
  15. NALMEFENE [Suspect]
     Indication: NAUSEA
     Dosage: 60 MCG
     Route: 042
  16. NALMEFENE [Suspect]
     Indication: VOMITING
  17. PROPOFOL [Suspect]
     Indication: NAUSEA
     Dosage: 20 MG
     Route: 042
  18. METOCLOPRAMIDE HYDROCHLORIDE [Suspect]
     Indication: NAUSEA
     Dosage: 10 MG
  19. METOCLOPRAMIDE HYDROCHLORIDE [Suspect]
     Indication: VOMITING
  20. NALOXONE [Concomitant]
     Indication: VOMITING
  21. NALOXONE [Concomitant]
     Indication: NAUSEA

REACTIONS (6)
  - CHILLS [None]
  - DRUG INEFFECTIVE [None]
  - HOT FLUSH [None]
  - PROCEDURAL NAUSEA [None]
  - PROCEDURAL VOMITING [None]
  - RESTLESSNESS [None]
